FAERS Safety Report 9735045 (Version 1)
Quarter: 2013Q4

REPORT INFORMATION
  Report Type: Spontaneous
  Country: BR (occurrence: None)
  Receive Date: 20131204
  Receipt Date: 20131204
  Transmission Date: 20140711
  Serious: Yes (Other)
  Sender: FDA-Public Use
  Company Number: SYM-2013-13520

PATIENT
  Age: 84 Year
  Sex: Female

DRUGS (1)
  1. FLAGYL [Suspect]
     Indication: ERYSIPELAS
     Dosage: ORAL
     Route: 048
     Dates: start: 20131106, end: 20131110

REACTIONS (1)
  - Dysentery [None]
